FAERS Safety Report 14013533 (Version 1)
Quarter: 2017Q3

REPORT INFORMATION
  Report Type: Report from Study
  Country: SA (occurrence: SA)
  Receive Date: 20170926
  Receipt Date: 20170926
  Transmission Date: 20171128
  Serious: Yes (Death)
  Sender: FDA-Public Use
  Company Number: SA-PFIZER INC-2017408663

PATIENT
  Age: 50 Year
  Sex: Female

DRUGS (14)
  1. AMIKACIN SULFATE. [Suspect]
     Active Substance: AMIKACIN SULFATE
     Indication: PNEUMONIA
     Dosage: 500 MG, 1X/DAY
     Route: 042
  2. NOREPINEPHRINE. [Concomitant]
     Active Substance: NOREPINEPHRINE
     Dosage: UNK (LOW DOSE VASOPRESSORS DOSE)
  3. CEFTAZIDIME. [Suspect]
     Active Substance: CEFTAZIDIME
     Indication: PNEUMONIA
     Dosage: UNK
  4. LINEZOLID. [Suspect]
     Active Substance: LINEZOLID
     Indication: PNEUMONIA
     Dosage: UNK
  5. COLISTIN [Suspect]
     Active Substance: COLISTIN
     Indication: PNEUMONIA
     Dosage: 3 IU, 2X/DAY
     Route: 042
  6. HYDROCORTISONE. [Concomitant]
     Active Substance: HYDROCORTISONE
     Dosage: UNK
  7. INSULIN [Concomitant]
     Active Substance: INSULIN NOS
     Indication: DIABETES MELLITUS
     Dosage: UNK (INFUSION)
     Route: 041
  8. VANCOMYCIN HCL [Suspect]
     Active Substance: VANCOMYCIN HYDROCHLORIDE
     Dosage: UNK
  9. DOPAMINE [Concomitant]
     Active Substance: DOPAMINE\DOPAMINE HYDROCHLORIDE
     Dosage: UNK (LOW DOSE VASOPRESSORS DOSE)
  10. MEROPENEM. [Suspect]
     Active Substance: MEROPENEM
     Indication: PNEUMONIA
     Dosage: 1 G, 2X/DAY
     Route: 042
  11. TIGECYCLINE. [Suspect]
     Active Substance: TIGECYCLINE
     Indication: PNEUMONIA
     Dosage: UNK
  12. IMIPENEM [Suspect]
     Active Substance: IMIPENEM
     Indication: PNEUMONIA
     Dosage: UNK
  13. CASPOFUNGIN [Suspect]
     Active Substance: CASPOFUNGIN
     Indication: PNEUMONIA
     Dosage: 50 MG, 1X/DAY
  14. VANCOMYCIN HCL [Suspect]
     Active Substance: VANCOMYCIN HYDROCHLORIDE
     Indication: PNEUMONIA
     Dosage: 500 MG, 1X/DAY
     Route: 042

REACTIONS (2)
  - Drug resistance [Fatal]
  - Drug ineffective [Fatal]
